FAERS Safety Report 8290151-6 (Version None)
Quarter: 2012Q1

REPORT INFORMATION
  Report Type: 
  Country: None (occurrence: None)
  Receive Date: 20120316
  Receipt Date: 20090212
  Transmission Date: 20120608
  Serious: Yes (Other)
  Sender: FDA-Public Use
  Company Number: PHEH2009US01401

PATIENT
  Age: 58 Year
  Sex: Female
  Weight: 89.3 kg

DRUGS (1)
  1. TEKTURNA [Suspect]
     Dosage: 150MG, QD, ORAL
     Route: 048
     Dates: start: 20090129, end: 20090203

REACTIONS (3)
  - PRURITUS [None]
  - ANGIOEDEMA [None]
  - PERIORBITAL OEDEMA [None]
